FAERS Safety Report 9335294 (Version 2)
Quarter: 2013Q4

REPORT INFORMATION
  Report Type: Spontaneous
  Country: US (occurrence: US)
  Receive Date: 20130606
  Receipt Date: 20131031
  Transmission Date: 20140711
  Serious: No
  Sender: FDA-Public Use
  Company Number: US-PFIZER INC-2013069952

PATIENT
  Age: 69 Year
  Sex: Male
  Weight: 72.11 kg

DRUGS (16)
  1. LIPITOR [Suspect]
     Indication: BLOOD CHOLESTEROL INCREASED
     Dosage: 10 MG, DAILY
     Route: 048
     Dates: start: 2003
  2. LIPITOR [Suspect]
     Dosage: UNK
     Route: 048
     Dates: start: 2013, end: 201305
  3. VIAGRA [Suspect]
     Dosage: 100 MG, AS NEEDED
  4. ZITHROMAX [Suspect]
     Dosage: UNK
  5. GLIPIZIDE [Concomitant]
     Indication: DIABETES MELLITUS
     Dosage: 5 MG, DAILY
     Route: 048
  6. METFORMIN [Concomitant]
     Indication: DIABETES MELLITUS
     Dosage: 250 MG, 2X/DAY (500 MG SPLIT INTO HALF)
     Route: 048
  7. DIABETA [Concomitant]
     Dosage: 2.5 MG, 2X/DAY (HALF OF A 5 MG TABLET)
     Route: 048
  8. LIBRAX [Concomitant]
     Dosage: CHLORDIAZEPOXIDE 5 MG/CLIDINIUM 2.5 MG , AS NEEDED
     Route: 048
  9. COZAAR [Concomitant]
     Dosage: 25 MG, 1X/DAY
     Route: 048
  10. TOBREX [Concomitant]
     Dosage: 1 GTT, EVERY 4 HRS
     Route: 047
  11. GLUCOPHAGE XR [Concomitant]
     Dosage: 500 MG, 2X/DAY
     Route: 048
  12. LODINE [Concomitant]
     Dosage: 500 MG, 2X/DAY
     Route: 048
  13. OXSORALEN [Concomitant]
     Dosage: 40 MG, SINGLE
     Route: 048
  14. PRILOSEC [Concomitant]
     Dosage: 40 MG, DAILY
     Route: 048
  15. VITAMIN D3 [Concomitant]
     Dosage: 1000 IU, UNK
     Route: 048
  16. ASPIRIN [Concomitant]
     Dosage: 81 MG, ALTERNATE DAY

REACTIONS (2)
  - Muscle spasms [Recovering/Resolving]
  - Myalgia [Unknown]
